FAERS Safety Report 13742597 (Version 1)
Quarter: 2017Q3

REPORT INFORMATION
  Report Type: Spontaneous
  Country: FR (occurrence: FR)
  Receive Date: 20170711
  Receipt Date: 20170711
  Transmission Date: 20171127
  Serious: Yes (Hospitalization)
  Sender: FDA-Public Use
  Company Number: FR-SA-2017SA121809

PATIENT
  Age: 62 Year
  Sex: Male

DRUGS (14)
  1. OFLOCET [Suspect]
     Active Substance: OFLOXACIN
     Route: 048
     Dates: start: 201705
  2. LOVENOX [Suspect]
     Active Substance: ENOXAPARIN SODIUM
     Route: 058
     Dates: start: 201706
  3. RIMACTAN [Suspect]
     Active Substance: RIFAMPIN
     Route: 048
     Dates: start: 20170415
  4. LOVENOX [Suspect]
     Active Substance: ENOXAPARIN SODIUM
     Route: 058
     Dates: start: 20170415, end: 20170601
  5. CLAIRYG [Concomitant]
     Active Substance: HUMAN IMMUNOGLOBULIN G
     Route: 065
     Dates: start: 201701
  6. INDAPAMIDE. [Concomitant]
     Active Substance: INDAPAMIDE
     Route: 048
  7. SOLUPRED [Concomitant]
     Active Substance: PREDNISOLONE
     Indication: IMMUNE THROMBOCYTOPENIC PURPURA
     Route: 048
     Dates: start: 20170127, end: 20170415
  8. OFLOCET [Suspect]
     Active Substance: OFLOXACIN
     Route: 048
     Dates: start: 20170415, end: 20170522
  9. PERINDOPRIL [Concomitant]
     Active Substance: PERINDOPRIL
     Route: 048
  10. SOLU-MEDROL [Concomitant]
     Active Substance: METHYLPREDNISOLONE SODIUM SUCCINATE
     Route: 065
     Dates: start: 201701
  11. BIPRETERAX [Concomitant]
     Active Substance: INDAPAMIDE\PERINDOPRIL
  12. FENOFIBRATE. [Concomitant]
     Active Substance: FENOFIBRATE
     Route: 048
  13. OFLOCET [Suspect]
     Active Substance: OFLOXACIN
     Route: 065
     Dates: start: 2017
  14. METFORMIN [Concomitant]
     Active Substance: METFORMIN HYDROCHLORIDE
     Route: 048

REACTIONS (2)
  - Aplastic anaemia [Not Recovered/Not Resolved]
  - Acute kidney injury [Recovered/Resolved]

NARRATIVE: CASE EVENT DATE: 20170511
